FAERS Safety Report 7544815-X (Version None)
Quarter: 2011Q2

REPORT INFORMATION
  Report Type: 
  Country: None (occurrence: None)
  Receive Date: 20110614
  Receipt Date: 20100116
  Transmission Date: 20111010
  Serious: Yes (Death, Other)
  Sender: FDA-Public Use
  Company Number: US-BAYER-201011335NA

PATIENT
  Age: 69 Year
  Sex: Male
  Weight: 99 kg

DRUGS (10)
  1. TRASYLOL [Suspect]
     Indication: CORONARY ARTERY BYPASS
     Dosage: 200 ML, (LOADING DOSE)
     Route: 042
     Dates: start: 20030401, end: 20030401
  2. HEPARIN [Concomitant]
     Dosage: 29000 U, UNK
     Route: 042
     Dates: start: 20030401, end: 20030401
  3. TRAZODONE HCL [Concomitant]
     Dosage: 50 MG, HS (LONG TERM USE)
     Route: 048
  4. ANCEF [Concomitant]
     Dosage: 1 G, UNK
     Route: 042
     Dates: start: 20030401, end: 20030401
  5. VERSED [Concomitant]
     Dosage: 16 ML, UNK
     Route: 042
     Dates: start: 20030401, end: 20030401
  6. ROCURONIUM BROMIDE [Concomitant]
     Dosage: 70 MG, UNK
     Route: 042
     Dates: start: 20030401, end: 20030401
  7. ACETYLSALICYLIC ACID SRT [Concomitant]
     Indication: HEADACHE
     Dosage: UNK, (LONG TERM USE)
     Route: 048
  8. ISOSORBIDE [Concomitant]
     Dosage: 3 ML, UNK
     Route: 042
     Dates: start: 20030401, end: 20030401
  9. PANCURONIUM [Concomitant]
     Dosage: 8 ML, UNK
     Route: 042
     Dates: start: 20030401, end: 20030401
  10. ETOMIDATE [Concomitant]
     Dosage: 10 MG, UNK
     Dates: start: 20030401, end: 20030401

REACTIONS (14)
  - ANHEDONIA [None]
  - INJURY [None]
  - PAIN [None]
  - DEATH [None]
  - FEAR [None]
  - DEPRESSION [None]
  - CEREBROVASCULAR ACCIDENT [None]
  - UNEVALUABLE EVENT [None]
  - RENAL IMPAIRMENT [None]
  - RENAL INJURY [None]
  - CARDIAC DISORDER [None]
  - RENAL FAILURE [None]
  - ORGAN FAILURE [None]
  - ANXIETY [None]
